FAERS Safety Report 4475620-9 (Version None)
Quarter: 2004Q4

REPORT INFORMATION
  Report Type: 
  Country: None (occurrence: None)
  Receive Date: 20041012
  Receipt Date: 20040930
  Transmission Date: 20050328
  Serious: Yes (Hospitalization, Other)
  Sender: FDA-Public Use
  Company Number: 2004073341

PATIENT
  Age: 19 Year
  Sex: Male

DRUGS (6)
  1. PHENYTOIN [Suspect]
     Indication: ILL-DEFINED DISORDER
  2. INFLIXIMAB (INFLIXIMAB) [Suspect]
     Indication: JUVENILE ARTHRITIS
     Dosage: 100 MG (100 MG,  1 IN 1 D), INTRAVENOUS
     Route: 042
     Dates: start: 20030626, end: 20031215
  3. CYCLOSPORINE [Concomitant]
  4. PREDNISOLONE [Concomitant]
  5. FOLIC ACID [Concomitant]
  6. PANADENE CO (CODEINE PHOSPHATE, PARACETAMOL) [Concomitant]

REACTIONS (3)
  - ANTICONVULSANT DRUG LEVEL BELOW THERAPEUTIC [None]
  - CONDITION AGGRAVATED [None]
  - EPILEPSY [None]
